FAERS Safety Report 4835954-2 (Version None)
Quarter: 2005Q4

REPORT INFORMATION
  Report Type: 
  Country: None (occurrence: None)
  Receive Date: 20051123
  Receipt Date: 20051108
  Transmission Date: 20060501
  Serious: Yes (Death)
  Sender: FDA-Public Use
  Company Number: DE-SANOFI-SYNTHELABO-A04200500964

PATIENT

DRUGS (3)
  1. ELOXATIN [Suspect]
     Indication: COLORECTAL CANCER
     Route: 041
     Dates: start: 20050101, end: 20050101
  2. FOLINIC ACID [Concomitant]
     Indication: COLORECTAL CANCER
     Route: 041
     Dates: start: 20050101, end: 20050101
  3. FLUOROURACIL [Concomitant]
     Indication: COLORECTAL CANCER
     Route: 041
     Dates: start: 20050101, end: 20050101

REACTIONS (1)
  - MUCOSAL INFLAMMATION [None]
